FAERS Safety Report 24185486 (Version 1)
Quarter: 2024Q3

REPORT INFORMATION
  Report Type: Report from Study
  Country: US (occurrence: US)
  Receive Date: 20240807
  Receipt Date: 20240807
  Transmission Date: 20241016
  Serious: Yes (Other)
  Sender: SUNOVION
  Company Number: US-SUMITOMO PHARMA SWITZERLAND GMBH-2024SPA000179

PATIENT

DRUGS (3)
  1. ORGOVYX [Suspect]
     Active Substance: RELUGOLIX
     Indication: Prostate cancer
     Dosage: 360 MG (LOADING DOSE)
     Route: 048
     Dates: start: 20231018, end: 20231018
  2. ORGOVYX [Suspect]
     Active Substance: RELUGOLIX
     Dosage: 120 MG, QD (MAINTENANCE DOSE)
     Route: 048
     Dates: start: 20231019
  3. INSULIN NOS [Concomitant]
     Active Substance: INSULIN NOS
     Dosage: UNKNOWN
     Route: 065

REACTIONS (5)
  - Loss of consciousness [Unknown]
  - Drug hypersensitivity [Unknown]
  - Orthostatic hypotension [Unknown]
  - Lethargy [Unknown]
  - Hypertension [Unknown]
